FAERS Safety Report 7924424-0 (Version None)
Quarter: 2011Q4

REPORT INFORMATION
  Report Type: 
  Country: None (occurrence: None)
  Receive Date: 20111117
  Receipt Date: 20110322
  Transmission Date: 20120403
  Serious: No
  Sender: FDA-Public Use
  Company Number: US-AMGEN-USASP2011013939

PATIENT
  Sex: Male

DRUGS (3)
  1. ENBREL [Suspect]
     Indication: PRODUCT USED FOR UNKNOWN INDICATION
  2. ENBREL [Suspect]
     Dosage: 25 MG, 2X/WEEK
     Dates: start: 20090101
  3. ENBREL [Suspect]
     Indication: ARTHRITIS

REACTIONS (1)
  - DRUG INEFFECTIVE [None]
